FAERS Safety Report 5403905-8 (Version None)
Quarter: 2007Q3

REPORT INFORMATION
  Report Type: 
  Country: None (occurrence: None)
  Receive Date: 20070731
  Receipt Date: 20070731
  Transmission Date: 20080115
  Serious: Yes (Hospitalization)
  Sender: FDA-Public Use
  Company Number: None

PATIENT
  Age: 48 Year
  Sex: Male

DRUGS (2)
  1. AZATHIOPRINE [Suspect]
     Indication: PROPHYLAXIS AGAINST TRANSPLANT REJECTION
     Dosage: 150MG EVERY DAY PO
     Route: 048
     Dates: start: 20050924, end: 20070721
  2. ALLOPURINOL [Suspect]
     Indication: GOUT
     Dosage: 100MG EVERY DAY PO
     Route: 048
     Dates: start: 20070407, end: 20070721

REACTIONS (1)
  - PANCYTOPENIA [None]
